FAERS Safety Report 6525385-1 (Version None)
Quarter: 2009Q4

REPORT INFORMATION
  Report Type: 
  Country: None (occurrence: None)
  Receive Date: 20091222
  Receipt Date: 20091204
  Transmission Date: 20100525
  Serious: Yes (Other)
  Sender: FDA-Public Use
  Company Number: AUR-APL-2009-01507

PATIENT
  Age: 81 Year
  Sex: Male

DRUGS (5)
  1. FINASTERIDE [Suspect]
     Indication: BENIGN PROSTATIC HYPERPLASIA
     Dosage: 5MG - DAILY - ORAL
     Route: 048
  2. LISINOPRIL [Concomitant]
  3. ACETYLSALICYLIC ACID [Concomitant]
  4. SIMVASTATIN [Concomitant]
  5. BECLOMETASONE INHALATION [Concomitant]

REACTIONS (4)
  - FLOPPY IRIS SYNDROME [None]
  - INTRAOCULAR PRESSURE INCREASED [None]
  - IRIDOCELE [None]
  - MIOSIS [None]
